FAERS Safety Report 11129466 (Version 2)
Quarter: 2020Q2

REPORT INFORMATION
  Report Type: Spontaneous
  Country: US (occurrence: US)
  Receive Date: 20150521
  Receipt Date: 20200424
  Transmission Date: 20200713
  Serious: Yes (Death, Other)
  Sender: FDA-Public Use
  Company Number: US-ASTRAZENECA-2013SE64980

PATIENT
  Age: 22799 Day
  Sex: Male

DRUGS (14)
  1. BYETTA [Suspect]
     Active Substance: EXENATIDE
     Indication: TYPE 2 DIABETES MELLITUS
     Dosage: 10 MCG/DOSE
     Route: 065
     Dates: start: 20060719
  2. ASPIRIN. [Concomitant]
     Active Substance: ASPIRIN
  3. PANTOPRAZOLE/PANTOPRAZOLE [Concomitant]
  4. CARAFATE/SUCRALFATE [Concomitant]
     Dosage: 10.0ML AS REQUIRED
  5. SYNTHROID [Concomitant]
     Active Substance: LEVOTHYROXINE SODIUM
  6. VITAMIN D3 [Concomitant]
     Active Substance: CHOLECALCIFEROL
  7. FLONASE [Concomitant]
     Active Substance: FLUTICASONE PROPIONATE
  8. TRILIPIX [Concomitant]
     Active Substance: FENOFIBRIC ACID
  9. BYETTA [Suspect]
     Active Substance: EXENATIDE
     Indication: TYPE 2 DIABETES MELLITUS
     Dosage: 5 MCG/0.02 ML
     Route: 065
     Dates: start: 20060512, end: 200610
  10. IPRATROPIUM [Concomitant]
     Active Substance: IPRATROPIUM
     Dosage: UNK UNK, QID
     Route: 045
  11. CIALIS [Concomitant]
     Active Substance: TADALAFIL
  12. GLUCOPHAGE [Concomitant]
     Active Substance: METFORMIN HYDROCHLORIDE
  13. FISH OIL [Concomitant]
     Active Substance: FISH OIL
  14. PRANDIN [Concomitant]
     Active Substance: REPAGLINIDE

REACTIONS (4)
  - Thyroid cancer [Unknown]
  - Diarrhoea [Unknown]
  - Mediastinal mass [Unknown]
  - Death [Fatal]

NARRATIVE: CASE EVENT DATE: 20090521
